FAERS Safety Report 16697939 (Version 1)
Quarter: 2019Q3

REPORT INFORMATION
  Report Type: Spontaneous
  Country: US (occurrence: US)
  Receive Date: 20190813
  Receipt Date: 20190813
  Transmission Date: 20191004
  Serious: Yes (Other)
  Sender: FDA-Public Use
  Company Number: US-PFIZER INC-2019341634

PATIENT

DRUGS (1)
  1. LIPITOR [Suspect]
     Active Substance: ATORVASTATIN CALCIUM
     Indication: BLOOD CHOLESTEROL ABNORMAL
     Dosage: UNK

REACTIONS (5)
  - Gait disturbance [Unknown]
  - Myalgia [Not Recovered/Not Resolved]
  - Feeling abnormal [Unknown]
  - Diabetes mellitus [Recovered/Resolved]
  - Nephropathy [Recovered/Resolved]
